FAERS Safety Report 11092022 (Version 1)
Quarter: 2015Q2

REPORT INFORMATION
  Report Type: Spontaneous
  Country: US (occurrence: US)
  Receive Date: 20150505
  Receipt Date: 20150505
  Transmission Date: 20150821
  Serious: Yes (Other)
  Sender: FDA-Public Use
  Company Number: US-MYLANLABS-2015M1014108

PATIENT

DRUGS (1)
  1. AMNESTEEM [Suspect]
     Active Substance: ISOTRETINOIN
     Dosage: UNK

REACTIONS (3)
  - Eye pruritus [Not Recovered/Not Resolved]
  - Scleritis [Not Recovered/Not Resolved]
  - Eyelid oedema [Not Recovered/Not Resolved]
